FAERS Safety Report 10216056 (Version 1)
Quarter: 2014Q2

REPORT INFORMATION
  Report Type: Spontaneous
  Country: FR (occurrence: FR)
  Receive Date: 20140604
  Receipt Date: 20140604
  Transmission Date: 20141212
  Serious: Yes (Hospitalization)
  Sender: FDA-Public Use
  Company Number: FR-ELI_LILLY_AND_COMPANY-FR201405008334

PATIENT
  Age: 30 Year
  Sex: Female

DRUGS (4)
  1. CYMBALTA [Suspect]
     Indication: AGORAPHOBIA
     Dosage: 60 MG, QD
     Route: 048
  2. ALDOMET                            /00000101/ [Suspect]
     Indication: ESSENTIAL HYPERTENSION
     Dosage: UNK, UNKNOWN
     Route: 065
  3. TRANDATE [Suspect]
     Indication: ESSENTIAL HYPERTENSION
     Dosage: 200 MG, TID
     Route: 048
  4. SYNTOCINON [Concomitant]
     Indication: INDUCED LABOUR
     Dosage: UNK, UNKNOWN
     Route: 065

REACTIONS (5)
  - Hepatocellular injury [Unknown]
  - Cholelithiasis [Unknown]
  - Gestational diabetes [Unknown]
  - Off label use [Unknown]
  - Exposure during pregnancy [Unknown]
